FAERS Safety Report 25344132 (Version 2)
Quarter: 2025Q2

REPORT INFORMATION
  Report Type: Spontaneous
  Country: US (occurrence: US)
  Receive Date: 20250521
  Receipt Date: 20250528
  Transmission Date: 20250716
  Serious: No
  Sender: SANOFI AVENTIS
  Company Number: US-SANOFI-02526779

PATIENT
  Age: 34 Year
  Sex: Female

DRUGS (2)
  1. LANTUS SOLOSTAR [Suspect]
     Active Substance: INSULIN GLARGINE
     Indication: Diabetes mellitus
     Dosage: 24 IU, QD
     Route: 065
     Dates: start: 2025, end: 2025
  2. LANTUS SOLOSTAR [Suspect]
     Active Substance: INSULIN GLARGINE
     Dosage: 32 IU, HS
     Route: 065
     Dates: start: 2025

REACTIONS (3)
  - Blood glucose increased [Unknown]
  - Needle issue [Unknown]
  - Device operational issue [Unknown]

NARRATIVE: CASE EVENT DATE: 20250101
